FAERS Safety Report 9721577 (Version 2)
Quarter: 2014Q2

REPORT INFORMATION
  Report Type: Report from Study
  Country: US (occurrence: US)
  Receive Date: 20131201
  Receipt Date: 20140606
  Transmission Date: 20141212
  Serious: No
  Sender: FDA-Public Use
  Company Number: US-009507513-1311USA012116

PATIENT
  Age: 30 Year
  Sex: Female

DRUGS (10)
  1. VICTRELIS [Suspect]
     Indication: HEPATITIS C
     Dosage: UNK
     Route: 048
     Dates: start: 20111203, end: 20121005
  2. PEGINTERFERON ALFA-2A [Suspect]
     Dosage: 180 MICROGRAM, QW
     Route: 058
  3. COPEGUS [Suspect]
     Indication: HEPATITIS C
     Dosage: RIBAVIRIN 1200 MG/DAY
     Route: 048
     Dates: start: 20111104, end: 20121005
  4. METFORMIN [Concomitant]
     Indication: POLYCYSTIC OVARIES
     Dosage: TOTAL DOSE2000 MG, UNK
     Dates: end: 20130216
  5. NEURONTIN [Concomitant]
     Indication: NEURALGIA
     Dosage: TOTAL DOSE900 MG, UNK
  6. SIMVASTATIN TABLETS, USP [Concomitant]
     Indication: BLOOD CHOLESTEROL INCREASED
     Dosage: TOTAL DOSE20 MG, UNK
  7. LOPID [Concomitant]
     Indication: BLOOD CHOLESTEROL INCREASED
     Dosage: TOTAL DOSE1200 MG, UNK
  8. ACYCLOVIR [Concomitant]
     Indication: HERPES SIMPLEX
     Dosage: TOTAL DOSE 400 MG, UNK
  9. ALLEGRA [Concomitant]
     Indication: HYPERSENSITIVITY
     Dosage: TOTAL DOSE 180 MG, UNK
  10. VITAMIN B COMPLEX [Concomitant]
     Indication: ROUTINE HEALTH MAINTENANCE
     Dosage: TOTAL DOSE 1 TAB, UNK

REACTIONS (1)
  - Maternal exposure before pregnancy [Unknown]
